FAERS Safety Report 16833704 (Version 3)
Quarter: 2021Q3

REPORT INFORMATION
  Report Type: Report from Study
  Country: None (occurrence: CA)
  Receive Date: 20190920
  Receipt Date: 20210921
  Transmission Date: 20211014
  Serious: Yes (Hospitalization, Other)
  Sender: FDA-Public Use
  Company Number: CA-ABBVIE-19K-028-2930189-00

PATIENT
  Age: 55 Year
  Sex: Female

DRUGS (5)
  1. HUMIRA [Suspect]
     Active Substance: ADALIMUMAB
     Route: 058
     Dates: start: 20210609, end: 20210609
  2. COVID?19 VACCINE [Concomitant]
     Indication: COVID-19 PROPHYLAXIS
     Route: 030
  3. PREDNISONE. [Concomitant]
     Active Substance: PREDNISONE
     Indication: PRODUCT USED FOR UNKNOWN INDICATION
     Route: 065
  4. HUMIRA [Suspect]
     Active Substance: ADALIMUMAB
     Route: 058
     Dates: start: 2021, end: 2021
  5. HUMIRA [Suspect]
     Active Substance: ADALIMUMAB
     Indication: CROHN^S DISEASE
     Route: 058
     Dates: start: 20080129

REACTIONS (24)
  - Uveitis [Not Recovered/Not Resolved]
  - Abdominal distension [Not Recovered/Not Resolved]
  - Diarrhoea [Unknown]
  - Crohn^s disease [Recovering/Resolving]
  - Blood iron decreased [Not Recovered/Not Resolved]
  - Fatigue [Not Recovered/Not Resolved]
  - Intestinal stenosis [Unknown]
  - Inflammatory marker increased [Recovering/Resolving]
  - Flatulence [Unknown]
  - Therapeutic response shortened [Not Recovered/Not Resolved]
  - Rash papular [Recovered/Resolved]
  - Arthralgia [Not Recovered/Not Resolved]
  - Discomfort [Unknown]
  - Intestinal obstruction [Not Recovered/Not Resolved]
  - General physical health deterioration [Unknown]
  - Gastrointestinal stoma complication [Unknown]
  - Impaired quality of life [Not Recovered/Not Resolved]
  - Pruritus [Recovered/Resolved]
  - Impaired work ability [Not Recovered/Not Resolved]
  - Eye pruritus [Unknown]
  - SARS-CoV-2 test positive [Recovered/Resolved]
  - Faecal calprotectin increased [Recovering/Resolving]
  - Dry eye [Not Recovered/Not Resolved]
  - Abdominal pain [Unknown]

NARRATIVE: CASE EVENT DATE: 2017
